FAERS Safety Report 22108585 (Version 1)
Quarter: 2023Q1

REPORT INFORMATION
  Report Type: Report from Study
  Country: IT (occurrence: IT)
  Receive Date: 20230317
  Receipt Date: 20230317
  Transmission Date: 20230418
  Serious: Yes (Death, Other)
  Sender: FDA-Public Use
  Company Number: IT-TAKEDA-2023TUS027599

PATIENT
  Age: 83 Year
  Sex: Male

DRUGS (1)
  1. HUMAN IMMUNOGLOBULIN G\HYALURONIDASE RECOMBINANT HUMAN [Suspect]
     Active Substance: HUMAN IMMUNOGLOBULIN G\HYALURONIDASE RECOMBINANT HUMAN
     Indication: Hypogammaglobulinaemia
     Dosage: 20 GRAM, Q4WEEKS
     Route: 058
     Dates: start: 20220119, end: 20230215

REACTIONS (1)
  - Death [Fatal]

NARRATIVE: CASE EVENT DATE: 20230311
